FAERS Safety Report 16412726 (Version 1)
Quarter: 2019Q2

REPORT INFORMATION
  Report Type: Spontaneous
  Country: FR (occurrence: FR)
  Receive Date: 20190611
  Receipt Date: 20190611
  Transmission Date: 20190711
  Serious: Yes (Other)
  Sender: FDA-Public Use
  Company Number: FR-TEVA-2019-FR-1060221

PATIENT
  Age: 50 Year
  Sex: Male

DRUGS (5)
  1. LOXAPAC 100 MG, COMPRIM? PELLICUL? [Concomitant]
     Dosage: 1 DOSAGE FORMS DAILY;
     Route: 048
  2. TERALITHE [Suspect]
     Active Substance: LITHIUM CARBONATE
     Indication: SCHIZOPHRENIA
     Dosage: 1 DOSAGE FORMS DAILY;
     Route: 048
  3. MODECATE [Concomitant]
     Active Substance: FLUPHENAZINE DECANOATE
     Route: 030
     Dates: end: 20190314
  4. AKINETON L.P. 4 MG, COMPRIM? ENROB? ? LIB?RATION PROLONG?E [Concomitant]
     Dosage: 1 DOSAGE FORMS DAILY;
     Route: 048
  5. CLOZAPINE. [Suspect]
     Active Substance: CLOZAPINE
     Indication: SCHIZOPHRENIA
     Route: 048
     Dates: start: 20190314

REACTIONS (1)
  - Lymphopenia [Recovering/Resolving]

NARRATIVE: CASE EVENT DATE: 20190321
